FAERS Safety Report 13040601 (Version 1)
Quarter: 2016Q4

REPORT INFORMATION
  Report Type: Spontaneous
  Country: US (occurrence: US)
  Receive Date: 20161219
  Receipt Date: 20161219
  Transmission Date: 20170207
  Serious: Yes (Other)
  Sender: FDA-Public Use
  Company Number: US-SA-2016SA126197

PATIENT
  Age: 91 Year
  Sex: Male
  Weight: 69.85 kg

DRUGS (13)
  1. POTASSIUM [Concomitant]
     Active Substance: POTASSIUM
  2. AVASTIN [Concomitant]
     Active Substance: BEVACIZUMAB
  3. VITAMIN C [Concomitant]
     Active Substance: ASCORBIC ACID
  4. VALIUM [Concomitant]
     Active Substance: DIAZEPAM
     Dosage: 5 MG TWO TIMES DAILY AS NEEDED. I USUALLY TAKE ONE AND A HALF.
  5. LACTULOSE. [Concomitant]
     Active Substance: LACTULOSE
  6. METOPROLOL. [Concomitant]
     Active Substance: METOPROLOL
     Dosage: SPIT IT IN TWO, ONE IN MORNING,  ONE IN EVENING
  7. FUROSEMIDE. [Concomitant]
     Active Substance: FUROSEMIDE
  8. PLAVIX [Suspect]
     Active Substance: CLOPIDOGREL BISULFATE
     Route: 065
  9. DIAZEPAM. [Concomitant]
     Active Substance: DIAZEPAM
  10. BABY ASPIRIN [Concomitant]
     Active Substance: ASPIRIN
  11. LISINOPRIL. [Concomitant]
     Active Substance: LISINOPRIL
  12. ZINC [Concomitant]
     Active Substance: ZINC\ZINC CHLORIDE
  13. VITAMIN D [Concomitant]
     Active Substance: CHOLECALCIFEROL

REACTIONS (2)
  - Myocardial infarction [Unknown]
  - Faeces hard [Unknown]

NARRATIVE: CASE EVENT DATE: 2014
